FAERS Safety Report 5574832-0 (Version None)
Quarter: 2007Q4

REPORT INFORMATION
  Report Type: 
  Country: None (occurrence: None)
  Receive Date: 20071130
  Receipt Date: 20070822
  Transmission Date: 20080405
  Serious: No
  Sender: FDA-Public Use
  Company Number: US200708005148

PATIENT
  Age: 58 Year
  Sex: Female
  Weight: 122.4 kg

DRUGS (4)
  1. BYETTA [Suspect]
     Indication: INSULIN-REQUIRING TYPE II DIABETES MELLITUS
     Dosage: 10 UG, 2/D, SUBCUTANEOUS
     Route: 058
     Dates: start: 20070821
  2. GLUCOPHAGE [Concomitant]
  3. AMARYL [Concomitant]
  4. LANTUS [Concomitant]

REACTIONS (9)
  - ASTHENIA [None]
  - BLOOD GLUCOSE DECREASED [None]
  - CHEST DISCOMFORT [None]
  - DECREASED APPETITE [None]
  - FEELING JITTERY [None]
  - HEADACHE [None]
  - HYPERHIDROSIS [None]
  - NAUSEA [None]
  - VOMITING [None]
